FAERS Safety Report 8583589-0 (Version None)
Quarter: 2012Q3

REPORT INFORMATION
  Report Type: 
  Country: None (occurrence: None)
  Receive Date: 20120809
  Receipt Date: 20120727
  Transmission Date: 20120928
  Serious: Yes (Other)
  Sender: FDA-Public Use
  Company Number: NL-MYLANLABS-2012S1015697

PATIENT
  Age: 82 Year
  Sex: Female

DRUGS (5)
  1. DIPYRIDAMOLE [Concomitant]
     Route: 065
  2. RISEDRONIC ACID [Concomitant]
     Indication: OSTEOPOROSIS
     Route: 065
  3. TERBINAFINE HCL [Suspect]
     Indication: ONYCHOMYCOSIS
     Route: 048
  4. LEKOVIT CA [Concomitant]
     Indication: OSTEOPOROSIS
     Route: 065
  5. LISINOPRIL [Concomitant]
     Indication: HYPERTENSION
     Dosage: 5MG DAILY
     Route: 065

REACTIONS (4)
  - HEADACHE [None]
  - ASTHENIA [None]
  - HEARING IMPAIRED [None]
  - INSOMNIA [None]
